FAERS Safety Report 9271015 (Version 5)
Quarter: 2014Q2

REPORT INFORMATION
  Report Type: Report from Study
  Country: GB (occurrence: GB)
  Receive Date: 20130506
  Receipt Date: 20140513
  Transmission Date: 20141212
  Serious: Yes (Death, Life-Threatening, Hospitalization)
  Sender: FDA-Public Use
  Company Number: GB-CELGENEUS-167-C5013-13044940

PATIENT
  Age: 73 Year
  Sex: Female
  Weight: 86 kg

DRUGS (7)
  1. CC-5013 [Suspect]
     Indication: CHRONIC MYELOMONOCYTIC LEUKAEMIA
     Dosage: 10 MILLIGRAM
     Route: 048
     Dates: start: 20130206
  2. CC-5013 [Suspect]
     Dosage: 10 MILLIGRAM
     Route: 048
     Dates: start: 20130403, end: 20130427
  3. THYROXIN [Concomitant]
     Indication: HYPOTHYROIDISM
     Dosage: 75 MICROGRAM
     Route: 048
     Dates: start: 2003
  4. LANSOPRAZOLE [Concomitant]
     Indication: GASTROOESOPHAGEAL REFLUX PROPHYLAXIS
     Dosage: 15 MILLIGRAM
     Route: 048
     Dates: start: 2009
  5. CO-CODAMOL [Concomitant]
     Indication: BACK PAIN
     Dosage: 8/500
     Route: 048
     Dates: start: 20130325
  6. CO-CODAMOL [Concomitant]
     Indication: MUSCULOSKELETAL CHEST PAIN
  7. NAPROXEN [Concomitant]
     Indication: MUSCULOSKELETAL PAIN
     Dosage: 1000 MILLIGRAM
     Route: 048
     Dates: start: 20130318

REACTIONS (3)
  - Gastrointestinal necrosis [Fatal]
  - Multi-organ failure [Fatal]
  - Bronchopulmonary aspergillosis [Fatal]
